FAERS Safety Report 4967263-5 (Version None)
Quarter: 2006Q2

REPORT INFORMATION
  Report Type: 
  Country: None (occurrence: None)
  Receive Date: 20060403
  Receipt Date: 20060325
  Transmission Date: 20061013
  Serious: Yes (Hospitalization)
  Sender: FDA-Public Use
  Company Number: 2006016297

PATIENT
  Age: 43 Year
  Sex: Male
  Weight: 107.9561 kg

DRUGS (8)
  1. LYRICA [Suspect]
     Indication: DIABETIC NEUROPATHY
     Dosage: 150 MG (50 MG, 1 IN 8 HR)
  2. ALL OTHER THERAPEUTIC PRODUCTS (ALL OTHER THERAPEUTIC PRODUCTS) [Concomitant]
  3. PREVACID [Concomitant]
  4. METHADONE HCL [Concomitant]
  5. LORTAB [Concomitant]
  6. KLONOPIN [Concomitant]
  7. ELAVIL [Concomitant]
  8. PLAVIS (CLOPIDOGREL SULFATE) [Concomitant]

REACTIONS (1)
  - MENTAL STATUS CHANGES [None]
